FAERS Safety Report 9785563 (Version 1)
Quarter: 2013Q4

REPORT INFORMATION
  Report Type: Spontaneous
  Country: FR (occurrence: None)
  Receive Date: 20131224
  Receipt Date: 20131224
  Transmission Date: 20140711
  Serious: Yes (Life-Threatening)
  Sender: FDA-Public Use
  Company Number: 2078335

PATIENT
  Age: 62 Year
  Sex: Male

DRUGS (4)
  1. ATRACURIUM BESILATE [Suspect]
     Indication: INDUCTION OF ANAESTHESIA
     Route: 040
     Dates: start: 20130701, end: 20130701
  2. SUFENTANIL [Suspect]
     Indication: INDUCTION OF ANAESTHESIA
     Route: 040
     Dates: start: 20130701, end: 20130701
  3. ULTIVA [Suspect]
     Indication: INDUCTION OF ANAESTHESIA
     Route: 040
     Dates: start: 20130701, end: 20130701
  4. PROPOFOL LIPURO [Suspect]
     Indication: INDUCTION OF ANAESTHESIA
     Route: 040
     Dates: start: 20130701, end: 20130701

REACTIONS (6)
  - Anaphylactic shock [None]
  - Bronchospasm [None]
  - Hypotension [None]
  - Tachycardia [None]
  - Generalised erythema [None]
  - Hyperhidrosis [None]
